FAERS Safety Report 24121711 (Version 1)
Quarter: 2024Q3

REPORT INFORMATION
  Report Type: Report from Study
  Country: ES (occurrence: ES)
  Receive Date: 20240722
  Receipt Date: 20240722
  Transmission Date: 20241017
  Serious: Yes (Other)
  Sender: TEVA
  Company Number: None

PATIENT
  Age: 67 Year
  Sex: Male

DRUGS (4)
  1. LEUCOVORIN [Interacting]
     Active Substance: LEUCOVORIN\LEUCOVORIN CALCIUM
     Indication: Product used for unknown indication
     Dosage: FOLINICO ACID (1587A)
     Route: 065
     Dates: start: 20230207
  2. OXALIPLATIN [Interacting]
     Active Substance: OXALIPLATIN
     Indication: Product used for unknown indication
     Dosage: OXALIPLATINO (7351A)
     Route: 065
     Dates: start: 20230207
  3. FLUOROURACIL [Interacting]
     Active Substance: FLUOROURACIL
     Indication: Product used for unknown indication
     Dosage: FLUOROURACILO (272A)
     Route: 065
     Dates: start: 20230207
  4. NIVOLUMAB [Interacting]
     Active Substance: NIVOLUMAB
     Indication: Product used for unknown indication
     Dosage: NIVOLUMAB (9143A)
     Route: 065
     Dates: start: 20230207

REACTIONS (1)
  - Pemphigoid [Recovered/Resolved]

NARRATIVE: CASE EVENT DATE: 20230426
